FAERS Safety Report 7212221-3 (Version None)
Quarter: 2010Q4

REPORT INFORMATION
  Report Type: 
  Country: None (occurrence: None)
  Receive Date: 20101227
  Receipt Date: 20101215
  Transmission Date: 20110411
  Serious: Yes (Hospitalization, Other)
  Sender: FDA-Public Use
  Company Number: JHP201000380

PATIENT
  Age: 39 Year
  Sex: Male

DRUGS (1)
  1. DANTRIUM [Suspect]
     Indication: CONVULSION
     Dosage: 150 MG, DAILY, ORAL
     Route: 048
     Dates: start: 20060115

REACTIONS (5)
  - HEPATIC CYST [None]
  - ILEUS [None]
  - MENINGITIS [None]
  - PNEUMONIA [None]
  - URINARY TRACT INFECTION [None]
